FAERS Safety Report 11368327 (Version 1)
Quarter: 2015Q3

REPORT INFORMATION
  Report Type: Spontaneous
  Country: US (occurrence: None)
  Receive Date: 20150811
  Receipt Date: 20150811
  Transmission Date: 20151125
  Serious: Yes (Life-Threatening, Hospitalization, Disabling)
  Sender: FDA-Public Use
  Company Number: None

PATIENT
  Age: 26 Year
  Sex: Male
  Weight: 72.58 kg

DRUGS (3)
  1. MEDICAL MARIJUANA (PRESCRIPTION) [Concomitant]
  2. CYMBALTA [Concomitant]
     Active Substance: DULOXETINE HYDROCHLORIDE
  3. OMEPRAZOLE 40MG [Suspect]
     Active Substance: OMEPRAZOLE
     Indication: DRUG THERAPY
     Route: 048
     Dates: start: 20150609, end: 20150613

REACTIONS (4)
  - Dyspepsia [None]
  - Loss of consciousness [None]
  - Clostridium difficile infection [None]
  - Muscle spasms [None]

NARRATIVE: CASE EVENT DATE: 20150609
